FAERS Safety Report 19992395 (Version 5)
Quarter: 2022Q3

REPORT INFORMATION
  Report Type: Report from Study
  Country: FR (occurrence: FR)
  Receive Date: 20211026
  Receipt Date: 20220721
  Transmission Date: 20221026
  Serious: Yes (Hospitalization, Other)
  Sender: FDA-Public Use
  Company Number: FR-CELLTRION INC.-2021FR014377

PATIENT

DRUGS (49)
  1. RITUXIMAB [Suspect]
     Active Substance: RITUXIMAB
     Indication: Diffuse large B-cell lymphoma
     Dosage: 680 MG/M2, ON 26/AUG/2021, THE PATIENT RECEIVED THE MOST RECENT DOSE OF STUDY DRUG PRIOR TO SERIOUS
     Route: 042
     Dates: start: 20210826
  2. RITUXIMAB [Suspect]
     Active Substance: RITUXIMAB
     Dosage: UNK
  3. GLOFITAMAB [Suspect]
     Active Substance: GLOFITAMAB
     Indication: Diffuse large B-cell lymphoma
     Dosage: 2500 UG, EVERY 3 WEEK. ON 14/OCT/2021 FROM 1:45 PM TO 5:30 PM, THE PATIENT RECEIVED THE MOST RECENT
     Route: 042
     Dates: start: 20210923
  4. GLOFITAMAB [Suspect]
     Active Substance: GLOFITAMAB
     Dosage: UNK
  5. DOXORUBICIN [Suspect]
     Active Substance: DOXORUBICIN
     Indication: Diffuse large B-cell lymphoma
     Dosage: ON 26/AUG/2021, THE PATIENT RECEIVED THE MOST RECENT DOSE OF STUDY DRUG PRIOR TO SERIOUS ADVERSE EVE
     Route: 042
     Dates: start: 20210826, end: 20210826
  6. VINCRISTINE [Suspect]
     Active Substance: VINCRISTINE
     Indication: Diffuse large B-cell lymphoma
     Dosage: ON 26/AUG/2021, THE PATIENT RECEIVED THE MOST RECENT DOSE OF STUDY DRUG PRIOR TO SERIOUS ADVERSE EVE
     Route: 042
     Dates: start: 20210826
  7. CYCLOPHOSPHAMIDE [Suspect]
     Active Substance: CYCLOPHOSPHAMIDE
     Indication: Diffuse large B-cell lymphoma
     Dosage: ON 26/AUG/2021, THE PATIENT RECEIVED THE MOST RECENT DOSE OF STUDY DRUG PRIOR TO SERIOUS ADVERSE EVE
     Route: 042
     Dates: start: 20210826, end: 20210826
  8. PREDNISONE [Suspect]
     Active Substance: PREDNISONE
     Indication: Diffuse large B-cell lymphoma
     Dosage: 100 MG, QD; START DATE OF MOST RECENT DOSE OF STUDY DRUG PRIOR TO AE: 11/OCT/2021
     Route: 048
     Dates: start: 20210826
  9. FLUTICASONE [Concomitant]
     Active Substance: FLUTICASONE
     Dosage: ONGOING YES
  10. FILGRASTIM [Concomitant]
     Active Substance: FILGRASTIM
     Dosage: 48 U
     Dates: start: 20210831, end: 20210906
  11. FILGRASTIM [Concomitant]
     Active Substance: FILGRASTIM
     Dosage: ONGOING NO
     Dates: start: 20211215, end: 20211220
  12. FILGRASTIM [Concomitant]
     Active Substance: FILGRASTIM
     Dosage: ONGOING NO
     Dates: start: 20211124, end: 20211129
  13. FILGRASTIM [Concomitant]
     Active Substance: FILGRASTIM
     Dosage: ONGOING NO
     Dates: start: 20211104, end: 20211109
  14. FILGRASTIM [Concomitant]
     Active Substance: FILGRASTIM
     Dosage: ONGOING NO
     Dates: start: 20211012, end: 20211018
  15. ALLOPURINOL [Concomitant]
     Active Substance: ALLOPURINOL
     Dosage: ONGOING NO
     Dates: start: 20210823, end: 20211007
  16. ALLOPURINOL [Concomitant]
     Active Substance: ALLOPURINOL
     Dosage: 300 MILLIGRAM
     Dates: start: 20210826
  17. DEXAMETHASONE [Concomitant]
     Active Substance: DEXAMETHASONE
     Indication: Premedication
     Dosage: 20 MG
     Dates: start: 20210923, end: 20210923
  18. CALCIUM PHOSPHATE, DIBASIC, ANHYDROUS\MAGNESIUM GLYCEROPHOSPHATE\PHOSP [Concomitant]
     Active Substance: CALCIUM PHOSPHATE, DIBASIC, ANHYDROUS\MAGNESIUM GLYCEROPHOSPHATE\PHOSPHORIC ACID\SODIUM PHOSPHATE, D
     Dosage: ONGOING NO
     Dates: start: 20211214, end: 20211228
  19. ACETAMINOPHEN [Concomitant]
     Active Substance: ACETAMINOPHEN
     Indication: Premedication
     Dosage: ONGOING NO, GIVEN FOR PROPHYLAXIS YES
     Dates: start: 20210923, end: 20210923
  20. ACETAMINOPHEN [Concomitant]
     Active Substance: ACETAMINOPHEN
     Dosage: ONGOING NO, GIVEN FOR PROPHYLAXIS YES
     Dates: start: 20211014, end: 20211014
  21. ACETAMINOPHEN [Concomitant]
     Active Substance: ACETAMINOPHEN
     Dosage: ONGOING NO, GIVEN FOR PROPHYLAXIS YES
     Dates: start: 20211123, end: 20211123
  22. ACETAMINOPHEN [Concomitant]
     Active Substance: ACETAMINOPHEN
     Dosage: ONGOING NO, GIVEN FOR PROPHYLAXIS YES
     Dates: start: 20210930, end: 20210930
  23. ACETAMINOPHEN [Concomitant]
     Active Substance: ACETAMINOPHEN
     Dosage: ONGOING NO
     Dates: start: 20211116, end: 20211116
  24. ACETAMINOPHEN [Concomitant]
     Active Substance: ACETAMINOPHEN
     Dosage: ONGOING NO
     Dates: start: 20211103, end: 20211103
  25. ACETAMINOPHEN [Concomitant]
     Active Substance: ACETAMINOPHEN
     Dosage: ONGOING NO, GIVEN FOR PROPHYLAXIS YES
     Dates: start: 20211007, end: 20211007
  26. ACETAMINOPHEN [Concomitant]
     Active Substance: ACETAMINOPHEN
     Dosage: ONGOING NO, GIVEN FOR PROPHYLAXIS YES
     Dates: start: 20210826, end: 20210826
  27. ACETAMINOPHEN [Concomitant]
     Active Substance: ACETAMINOPHEN
     Dosage: ONGOING NO, GIVEN FOR PROPHYLAXIS YES
     Dates: start: 20211028, end: 20211028
  28. ACETAMINOPHEN [Concomitant]
     Active Substance: ACETAMINOPHEN
     Dosage: ONGOING NO, GIVEN FOR PROPHYLAXIS YES
     Dates: start: 20211207, end: 20211207
  29. ACETAMINOPHEN [Concomitant]
     Active Substance: ACETAMINOPHEN
     Dosage: ONGOING NO
     Dates: start: 20211214, end: 20211214
  30. ACETAMINOPHEN [Concomitant]
     Active Substance: ACETAMINOPHEN
     Dosage: ONGOING NO, GIVEN FOR PROPHYLAXIS YES
     Dates: start: 20210916, end: 20210916
  31. NICARDIPINE HYDROCHLORIDE [Concomitant]
     Active Substance: NICARDIPINE HYDROCHLORIDE
     Indication: Hypertension
     Dosage: ONGOING YES
     Dates: start: 20210905
  32. BACTRIM [Concomitant]
     Active Substance: SULFAMETHOXAZOLE\TRIMETHOPRIM
     Dosage: 400 MG/80 MG, ONGOING YES
     Dates: start: 20210826
  33. LORATADINE [Concomitant]
     Active Substance: LORATADINE
     Indication: Premedication
     Dosage: ONGOING NO
     Dates: start: 20211123, end: 20211123
  34. LORATADINE [Concomitant]
     Active Substance: LORATADINE
     Dosage: ONGOING NO
     Dates: start: 20211214, end: 20211214
  35. LORATADINE [Concomitant]
     Active Substance: LORATADINE
     Dosage: ONGOING NO
     Dates: start: 20210916, end: 20210916
  36. LORATADINE [Concomitant]
     Active Substance: LORATADINE
     Dosage: ONGOING NO, GIVEN FOR PROPHYLAXIS YES
     Dates: start: 20211007, end: 20211007
  37. LORATADINE [Concomitant]
     Active Substance: LORATADINE
     Dosage: ONGOING NO,GIVEN FOR PROPHYLAXIS YES
     Dates: start: 20211103, end: 20211103
  38. LORATADINE [Concomitant]
     Active Substance: LORATADINE
     Dosage: ONGOING NO, GIVEN FOR PROPHYLAXIS YES
     Dates: start: 20211028, end: 20211028
  39. LORATADINE [Concomitant]
     Active Substance: LORATADINE
     Dosage: ONGOING NO,GIVEN FOR PROPHYLAXIS YES
     Dates: start: 20210930, end: 20210930
  40. LORATADINE [Concomitant]
     Active Substance: LORATADINE
     Dosage: ONGOING NO,GIVEN FOR PROPHYLAXIS YES
     Dates: start: 20211014, end: 20211014
  41. LORATADINE [Concomitant]
     Active Substance: LORATADINE
     Dosage: ONGOING NO,GIVEN FOR PROPHYLAXIS YES
     Dates: start: 20210923, end: 20210923
  42. LORATADINE [Concomitant]
     Active Substance: LORATADINE
     Dosage: ONGOING NO, GIVEN FOR PROPHYLAXIS YES
     Dates: start: 20210826, end: 20210826
  43. LORATADINE [Concomitant]
     Active Substance: LORATADINE
     Dosage: ONGOING NO,GIVEN FOR PROPHYLAXIS YES
     Dates: start: 20211116, end: 20211116
  44. LORATADINE [Concomitant]
     Active Substance: LORATADINE
     Dosage: ONGOING NO, GIVEN FOR PROPHYLAXIS YES
     Dates: start: 20211207, end: 20211207
  45. PREGABALIN [Concomitant]
     Active Substance: PREGABALIN
     Dosage: ONGOING NO
     Dates: start: 20210115, end: 20210116
  46. ESOMEPRAZOLE [Concomitant]
     Active Substance: ESOMEPRAZOLE
     Indication: Prophylaxis against gastrointestinal ulcer
     Dosage: ONGOING NO
     Dates: start: 20210917, end: 20210920
  47. ESOMEPRAZOLE [Concomitant]
     Active Substance: ESOMEPRAZOLE
     Dosage: ONGOING NO
     Dates: start: 20211008, end: 20211011
  48. LEUCOVORIN CALCIUM [Concomitant]
     Active Substance: LEUCOVORIN CALCIUM
     Dosage: 50 MG, ONGOING YES
     Dates: start: 20210826
  49. VALACYCLOVIR HYDROCHLORIDE [Concomitant]
     Active Substance: VALACYCLOVIR HYDROCHLORIDE
     Dosage: 1 G, ONGOING YES
     Dates: start: 20210826

REACTIONS (3)
  - Febrile neutropenia [Recovered/Resolved]
  - Febrile neutropenia [Recovered/Resolved]
  - Overdose [Unknown]

NARRATIVE: CASE EVENT DATE: 20210904
